FAERS Safety Report 4699122-X (Version None)
Quarter: 2005Q2

REPORT INFORMATION
  Report Type: 
  Country: None (occurrence: None)
  Receive Date: 20050624
  Receipt Date: 20050613
  Transmission Date: 20051028
  Serious: Yes (Other)
  Sender: FDA-Public Use
  Company Number: JP-JNJFOC-20050604392

PATIENT
  Age: 56 Year
  Sex: Female

DRUGS (8)
  1. ITRACONAZOLE [Suspect]
     Indication: DRUG USE FOR UNKNOWN INDICATION
     Route: 049
  2. LIMAPROST ALFADEX [Concomitant]
     Route: 049
  3. LORNOXICAM [Concomitant]
     Route: 049
  4. SOFALCONE [Concomitant]
     Route: 049
  5. ALENDRONATE SODIUM [Concomitant]
     Route: 049
  6. THEOPHYLLINE [Concomitant]
     Route: 049
  7. KETOTIFEN FUMARATE [Concomitant]
     Route: 049
  8. PRANLUKAST HYDRATE [Concomitant]
     Route: 049

REACTIONS (1)
  - PLATELET COUNT DECREASED [None]
